FAERS Safety Report 6894446-X (Version None)
Quarter: 2010Q3

REPORT INFORMATION
  Report Type: 
  Country: None (occurrence: None)
  Receive Date: 20100728
  Receipt Date: 20100713
  Transmission Date: 20110219
  Serious: Yes (Disabling)
  Sender: FDA-Public Use
  Company Number: GB-RANBAXY-2010RR-33283

PATIENT
  Age: 57 Year
  Sex: Female

DRUGS (10)
  1. CLARITHROMYCIN [Suspect]
     Dates: end: 20091209
  2. TRABECTEDIN [Suspect]
     Dosage: 1.2 MG/M2, INTRAVENOUSLY
     Route: 042
     Dates: start: 20091001
  3. TRABECTEDIN [Suspect]
     Dosage: 1.2 MG/M2, INTRAVENOUSLY
     Route: 042
     Dates: start: 20091202
  4. ASPIRIN [Concomitant]
  5. CLARITHROMYCIN [Concomitant]
  6. CYCLIZINE (CYCLIZINE) [Concomitant]
  7. DEXAMETHASONE [Concomitant]
  8. OMEPRAZOLE [Concomitant]
  9. TRAMADOL HCL [Concomitant]
  10. ATENOLOL [Concomitant]

REACTIONS (5)
  - ALANINE AMINOTRANSFERASE INCREASED [None]
  - BLOOD CREATINE PHOSPHOKINASE INCREASED [None]
  - BLOOD CREATININE INCREASED [None]
  - DRUG INTERACTION [None]
  - MYALGIA [None]
